FAERS Safety Report 9333084 (Version 3)
Quarter: 2013Q2

REPORT INFORMATION
  Report Type: Spontaneous
  Country: JP (occurrence: JP)
  Receive Date: 20130606
  Receipt Date: 20130620
  Transmission Date: 20140414
  Serious: Yes (Hospitalization)
  Sender: FDA-Public Use
  Company Number: JP-ASTRAZENECA-2013SE27761

PATIENT
  Age: 81 Year
  Sex: Female
  Weight: 63 kg

DRUGS (8)
  1. NEXIUM [Suspect]
     Indication: PROPHYLAXIS AGAINST GASTROINTESTINAL ULCER
     Route: 048
     Dates: start: 20130311, end: 20130322
  2. CELECOX [Suspect]
     Indication: ANALGESIC THERAPY
     Route: 048
     Dates: start: 20130311, end: 20130322
  3. DEPAS [Concomitant]
     Indication: INSOMNIA
     Route: 048
     Dates: start: 20130314, end: 20130322
  4. LIVALO [Concomitant]
     Indication: HYPERLIPIDAEMIA
     Route: 048
     Dates: end: 20130322
  5. SERMION [Concomitant]
     Indication: CEREBRAL INFARCTION
     Route: 048
     Dates: end: 20130322
  6. MAGLAX [Concomitant]
     Indication: CONSTIPATION
     Route: 048
     Dates: end: 20130322
  7. KARY UNI [Concomitant]
     Indication: CATARACT
     Dosage: DOSE UNKNOWN, THREE TIMES A DAY
     Route: 047
     Dates: end: 20130322
  8. TEARBALANCE [Concomitant]
     Indication: KERATITIS
     Dosage: DOSE UNKNOWN, FOUR TIMES A DAY
     Route: 047
     Dates: end: 20130322

REACTIONS (2)
  - Drug eruption [Recovered/Resolved]
  - Erythema [Recovered/Resolved]
